FAERS Safety Report 10195977 (Version 1)
Quarter: 2014Q2

REPORT INFORMATION
  Report Type: Spontaneous
  Country: US (occurrence: None)
  Receive Date: 20140523
  Receipt Date: 20140523
  Transmission Date: 20141212
  Serious: Yes (Life-Threatening)
  Sender: FDA-Public Use
  Company Number: None

PATIENT
  Age: 46 Year
  Sex: Male
  Weight: 88.5 kg

DRUGS (16)
  1. ISOVUE [Suspect]
     Indication: COMPUTERISED TOMOGRAM ABDOMEN
     Dosage: 1 DOSE ONE TIME INTRAVENOUS
     Route: 042
  2. ISOVUE [Suspect]
     Indication: COMPUTERISED TOMOGRAM
     Dosage: 1 DOSE ONE TIME INTRAVENOUS
     Route: 042
  3. PIPERACILLIN/TAZOBACTAM [Concomitant]
  4. SODIUM CHLORIDE [Concomitant]
  5. EPINEPHRINE [Concomitant]
  6. SUCCINYLCHOLINE [Concomitant]
  7. DIPHENHYDRAMINE [Concomitant]
  8. ENOXAPARIN [Concomitant]
  9. METRONIDAZOLE [Concomitant]
  10. FAMOTIDINE [Concomitant]
  11. NOVOLOG SLIDINE [Concomitant]
  12. LEVOFLOXACIN [Concomitant]
  13. HYDROCORTISONE [Concomitant]
  14. VANCOMYCIN [Concomitant]
  15. PROPOFOL [Concomitant]
  16. SODIUM BICARBONATE [Concomitant]

REACTIONS (4)
  - Unresponsive to stimuli [None]
  - Contrast media allergy [None]
  - Inappropriate schedule of drug administration [None]
  - Drug hypersensitivity [None]
